FAERS Safety Report 18473759 (Version 2)
Quarter: 2020Q4

REPORT INFORMATION
  Report Type: Spontaneous
  Country: FR (occurrence: FR)
  Receive Date: 20201106
  Receipt Date: 20201117
  Transmission Date: 20210114
  Serious: Yes (Death, Hospitalization)
  Sender: FDA-Public Use
  Company Number: FR-TEVA-2020-FR-1844898

PATIENT
  Age: 49 Year
  Sex: Male
  Weight: 76 kg

DRUGS (6)
  1. PACLITAXEL. [Suspect]
     Active Substance: PACLITAXEL
     Indication: TESTIS CANCER
     Dosage: 330 MG
     Route: 042
     Dates: start: 20200901, end: 20200901
  2. ETOPOSIDE. [Suspect]
     Active Substance: ETOPOSIDE
     Indication: TESTIS CANCER
     Dosage: 950 MG
     Route: 042
     Dates: start: 20200901, end: 20200905
  3. OXALIPLATINE [Suspect]
     Active Substance: OXALIPLATIN
     Indication: TESTIS CANCER
     Dosage: 247 MG
     Route: 042
     Dates: start: 20200910, end: 20200910
  4. BLEOMYCINE [Suspect]
     Active Substance: BLEOMYCIN SULFATE
     Indication: TESTIS CANCER
     Dosage: 90 MG
     Route: 042
     Dates: start: 20200901, end: 20200915
  5. CISPLATINE [Suspect]
     Active Substance: CISPLATIN
     Dosage: 190 MG
     Route: 042
     Dates: start: 20200901, end: 20200905
  6. CISPLATINE [Suspect]
     Active Substance: CISPLATIN
     Indication: TESTIS CANCER
     Dosage: 198 MG
     Route: 042
     Dates: start: 20200923, end: 20200923

REACTIONS (3)
  - Lung disorder [Fatal]
  - Respiratory failure [Fatal]
  - Acute respiratory distress syndrome [Fatal]

NARRATIVE: CASE EVENT DATE: 20201005
